FAERS Safety Report 9634264 (Version 1)
Quarter: 2013Q4

REPORT INFORMATION
  Report Type: Spontaneous
  Country: TR (occurrence: TR)
  Receive Date: 20131021
  Receipt Date: 20131021
  Transmission Date: 20140711
  Serious: Yes (Other)
  Sender: FDA-Public Use
  Company Number: TR-JNJFOC-20131005373

PATIENT
  Age: 7 Year
  Sex: Male

DRUGS (24)
  1. DOXORUBICIN [Suspect]
     Indication: T-CELL LYMPHOMA
     Route: 042
  2. DOXORUBICIN [Suspect]
     Indication: T-CELL LYMPHOMA
     Route: 042
  3. DOXORUBICIN [Suspect]
     Indication: NON-HODGKIN^S LYMPHOMA
     Route: 042
  4. DOXORUBICIN [Suspect]
     Indication: NON-HODGKIN^S LYMPHOMA
     Route: 042
  5. PREDNISON [Suspect]
     Indication: NON-HODGKIN^S LYMPHOMA
     Route: 065
  6. PREDNISON [Suspect]
     Indication: T-CELL LYMPHOMA
     Route: 065
  7. CYCLOPHOSPHAMIDE [Suspect]
     Indication: NON-HODGKIN^S LYMPHOMA
     Dosage: 0.3 G/M2 IV AND 0.5 G/M2 IV
     Route: 065
  8. CYCLOPHOSPHAMIDE [Suspect]
     Indication: T-CELL LYMPHOMA
     Dosage: 0.3 G/M2 IV AND 0.5 G/M2 IV
     Route: 065
  9. IMMUNOGLOBULIN [Suspect]
     Indication: NON-HODGKIN^S LYMPHOMA
     Route: 042
  10. METHOTREXATE [Suspect]
     Indication: NON-HODGKIN^S LYMPHOMA
     Route: 065
  11. METHOTREXATE [Suspect]
     Indication: T-CELL LYMPHOMA
     Route: 065
  12. VINCRISTINE [Suspect]
     Indication: T-CELL LYMPHOMA
     Route: 065
  13. VINCRISTINE [Suspect]
     Indication: NON-HODGKIN^S LYMPHOMA
     Route: 065
  14. CYTOSINE ARABINOSIDE [Suspect]
     Indication: NON-HODGKIN^S LYMPHOMA
     Route: 065
  15. CYTOSINE ARABINOSIDE [Suspect]
     Indication: T-CELL LYMPHOMA
     Route: 065
  16. CITROVORUM FACTOR [Suspect]
     Indication: NON-HODGKIN^S LYMPHOMA
     Route: 065
  17. CITROVORUM FACTOR [Suspect]
     Indication: T-CELL LYMPHOMA
     Route: 065
  18. DAUNOMYCIN [Suspect]
     Indication: NON-HODGKIN^S LYMPHOMA
     Route: 065
  19. L-ASPARAGINASE [Suspect]
     Indication: NON-HODGKIN^S LYMPHOMA
     Route: 065
  20. CYTARABINE [Suspect]
     Indication: NON-HODGKIN^S LYMPHOMA
     Route: 065
  21. MERCAPTOPURINE [Suspect]
     Indication: NON-HODGKIN^S LYMPHOMA
     Route: 065
  22. RADIOTHERAPY [Suspect]
     Indication: NON-HODGKIN^S LYMPHOMA
     Route: 065
  23. DEXAMETHASONE [Suspect]
     Indication: NON-HODGKIN^S LYMPHOMA
     Route: 065
  24. THIOGUANINE [Suspect]
     Indication: NON-HODGKIN^S LYMPHOMA
     Route: 065

REACTIONS (13)
  - Cardiac failure [Unknown]
  - Polyneuropathy [Unknown]
  - Non-Hodgkin^s lymphoma [Unknown]
  - Neutropenia [Unknown]
  - Thrombocytopenia [Unknown]
  - Hepatotoxicity [Unknown]
  - Anaemia [Unknown]
  - Mucosal inflammation [Unknown]
  - Oesophagitis [Unknown]
  - Neuropathy peripheral [Unknown]
  - Febrile neutropenia [Unknown]
  - Fungal infection [Unknown]
  - Bone marrow failure [Unknown]
